FAERS Safety Report 9752405 (Version 1)
Quarter: 2013Q4

REPORT INFORMATION
  Report Type: Spontaneous
  Country: US (occurrence: US)
  Receive Date: 20131213
  Receipt Date: 20131213
  Transmission Date: 20140711
  Serious: No
  Sender: FDA-Public Use
  Company Number: US-PFIZER INC-2013352142

PATIENT
  Age: 69 Year
  Sex: Female

DRUGS (5)
  1. INLYTA [Suspect]
     Indication: RENAL CANCER
     Dosage: 5 MG, UNK
     Dates: start: 20130319
  2. EUCERIN [Concomitant]
     Dosage: UNK
  3. MICARDIS [Concomitant]
     Dosage: UNK
  4. OMEPRAZOLE [Concomitant]
     Dosage: UNK
  5. SYNTHROID [Concomitant]
     Dosage: UNK

REACTIONS (1)
  - Palmar-plantar erythrodysaesthesia syndrome [Unknown]
